FAERS Safety Report 4606629-X (Version None)
Quarter: 2005Q2

REPORT INFORMATION
  Report Type: 
  Country: None (occurrence: None)
  Receive Date: 20050223
  Receipt Date: 20040412
  Transmission Date: 20051028
  Serious: Yes (Life-Threatening, Hospitalization, Other)
  Sender: FDA-Public Use
  Company Number: WAES 0404USA01231

PATIENT
  Age: 58 Year
  Sex: Female
  Weight: 69.4003 kg

DRUGS (3)
  1. ZOCOR [Suspect]
     Indication: HYPERLIPIDAEMIA
     Dosage: 40 MG/DAILY/PO
  2. CELLCEPT [Concomitant]
  3. NEORAL [Concomitant]

REACTIONS (1)
  - RHABDOMYOLYSIS [None]
